FAERS Safety Report 8926513 (Version 7)
Quarter: 2013Q4

REPORT INFORMATION
  Report Type: Report from Study
  Country: DE (occurrence: DE)
  Receive Date: 20121127
  Receipt Date: 20131121
  Transmission Date: 20140711
  Serious: Yes (Hospitalization)
  Sender: FDA-Public Use
  Company Number: PHHO2012DE016489

PATIENT
  Sex: 0

DRUGS (10)
  1. ACZ885 [Suspect]
     Indication: TYPE 2 DIABETES MELLITUS
     Dosage: 150 MG, UNK
     Route: 058
     Dates: start: 20121022, end: 20121022
  2. ACZ885 [Suspect]
     Indication: ARTERIOSCLEROSIS
  3. ASA [Concomitant]
     Indication: SPINAL PAIN
     Dosage: 100 MG, QD
  4. METOPROLOL [Concomitant]
     Indication: HYPERTENSION
     Dosage: 47.5 MG, BID
     Dates: start: 20110617
  5. METOPROLOL [Concomitant]
     Indication: CORONARY ARTERY DISEASE
  6. RAMIPRIL [Concomitant]
     Indication: HYPERTENSION
     Dosage: 5 MG, QD
     Dates: start: 20110617
  7. RAMIPRIL [Concomitant]
     Indication: CORONARY ARTERY DISEASE
  8. SIMVASTATIN [Concomitant]
     Indication: HYPERLIPIDAEMIA
     Dosage: 20 MG, QD
  9. PENTAERYTHRITOL TETRANITRATE [Concomitant]
     Indication: CORONARY ARTERY DISEASE
     Dosage: 50 MG, BID
     Dates: start: 20110607
  10. PANTOPRAZOLE [Concomitant]
     Indication: PROPHYLAXIS AGAINST GASTROINTESTINAL ULCER
     Dosage: 40 MG, QD
     Dates: start: 20110617

REACTIONS (1)
  - Urinary tract infection [Recovered/Resolved]
